FAERS Safety Report 9779888 (Version 2)
Quarter: 2013Q4

REPORT INFORMATION
  Report Type: Report from Study
  Country: VE (occurrence: VE)
  Receive Date: 20131223
  Receipt Date: 20131223
  Transmission Date: 20140711
  Serious: Yes (Hospitalization, Other)
  Sender: FDA-Public Use
  Company Number: VE-ABBVIE-13P-178-1038410-00

PATIENT
  Age: 45 Year
  Sex: Female
  Weight: 67 kg

DRUGS (2)
  1. HUMIRA [Suspect]
     Indication: RHEUMATOID ARTHRITIS
     Route: 058
     Dates: start: 20091218, end: 201203
  2. PLAQUINOL [Concomitant]
     Indication: RHEUMATOID ARTHRITIS

REACTIONS (11)
  - Immunosuppression [Recovered/Resolved]
  - Inflammation [Recovering/Resolving]
  - Weight decreased [Recovered/Resolved]
  - Abdominal distension [Recovered/Resolved]
  - Tuberculin test positive [Recovered/Resolved]
  - Cerebrovascular accident [Recovered/Resolved]
  - Weight decreased [Recovered/Resolved]
  - Dysgraphia [Unknown]
  - Memory impairment [Unknown]
  - Gait disturbance [Unknown]
  - Asthenia [Unknown]
